FAERS Safety Report 10699827 (Version 1)
Quarter: 2014Q4

REPORT INFORMATION
  Report Type: Spontaneous
  Country: GB (occurrence: None)
  Receive Date: 20141222
  Receipt Date: 20141222
  Transmission Date: 20150529
  Serious: Yes (Hospitalization)
  Sender: FDA-Public Use
  Company Number: GAM-441-14-GB

PATIENT
  Age: 86 Year
  Sex: Male

DRUGS (17)
  1. FLUTICASONE AND SALMETEROL [Concomitant]
     Active Substance: FLUTICASONE PROPIONATE\SALMETEROL XINAFOATE
  2. TIOTROPIUM [Concomitant]
     Active Substance: TIOTROPIUM
  3. QUININE SULFATE. [Concomitant]
     Active Substance: QUININE SULFATE
  4. CLIOQUINOL AND FLUMETASONE PIVALATE [Concomitant]
  5. CETIRIZINE [Concomitant]
     Active Substance: CETIRIZINE HYDROCHLORIDE
  6. OCTAGAM IMMUNE GLOBULIN (HUMAN) [Suspect]
     Active Substance: HUMAN IMMUNOGLOBULIN G
     Indication: PRIMARY IMMUNODEFICIENCY SYNDROME
     Dosage: (1X 1/TOTAL)
     Route: 042
     Dates: start: 20140213, end: 20140213
  7. ACETYLSALICYLIC ACID [Concomitant]
     Active Substance: ASPIRIN
  8. NITRAZEPAM [Concomitant]
     Active Substance: NITRAZEPAM
  9. AMINOPHYLLINE [Concomitant]
     Active Substance: AMINOPHYLLINE
  10. SILDENAFIL. [Concomitant]
     Active Substance: SILDENAFIL
  11. ATORVASTATIN [Concomitant]
     Active Substance: ATORVASTATIN
  12. ACETAMINOPHEN AND CODEINE [Concomitant]
     Active Substance: ACETAMINOPHEN\CODEINE PHOSPHATE
  13. PARACETAMOL [Concomitant]
     Active Substance: ACETAMINOPHEN
  14. TESTOSTERONE. [Concomitant]
     Active Substance: TESTOSTERONE
  15. AZITHROMYCIN [Concomitant]
     Active Substance: AZITHROMYCIN ANHYDROUS
  16. ALBUTEROL. [Concomitant]
     Active Substance: ALBUTEROL
  17. CALCIUM CARBONATE AND COLECALCIFEROL [Concomitant]

REACTIONS (1)
  - Pneumonia [None]

NARRATIVE: CASE EVENT DATE: 20140216
